FAERS Safety Report 21119342 (Version 2)
Quarter: 2022Q3

REPORT INFORMATION
  Report Type: Spontaneous
  Country: US (occurrence: US)
  Receive Date: 20220722
  Receipt Date: 20220728
  Transmission Date: 20221027
  Serious: Yes (Death, Other)
  Sender: FDA-Public Use
  Company Number: US-009507513-2207USA005274

PATIENT
  Sex: Male
  Weight: 63.5 kg

DRUGS (12)
  1. KEYTRUDA [Suspect]
     Active Substance: PEMBROLIZUMAB
     Indication: Malignant neoplasm of ampulla of Vater
     Dosage: 200 MILLIGRAM, EVERY 21 DAYS
     Route: 042
     Dates: start: 20220314, end: 20220428
  2. BISACODYL [Concomitant]
     Active Substance: BISACODYL
  3. HALDOL [Concomitant]
     Active Substance: HALOPERIDOL
  4. LEVSIN [Concomitant]
     Active Substance: HYOSCYAMINE SULFATE
  5. ATIVAN [Concomitant]
     Active Substance: LORAZEPAM
  6. METHADONE [Concomitant]
     Active Substance: METHADONE HYDROCHLORIDE
  7. REMERON [Concomitant]
     Active Substance: MIRTAZAPINE
  8. MS CONTIN [Concomitant]
     Active Substance: MORPHINE SULFATE
  9. ROXANOL [Concomitant]
     Active Substance: MORPHINE SULFATE
  10. OXYCODONE [Concomitant]
     Active Substance: OXYCODONE
  11. PHENOBARBITAL [Concomitant]
     Active Substance: PHENOBARBITAL
  12. MIRALAX [Concomitant]
     Active Substance: POLYETHYLENE GLYCOL 3350

REACTIONS (5)
  - Malignant neoplasm progression [Fatal]
  - Ill-defined disorder [Unknown]
  - Hospice care [Unknown]
  - Product use in unapproved indication [Unknown]
  - Product use issue [Unknown]

NARRATIVE: CASE EVENT DATE: 20220101
